FAERS Safety Report 5217820-6 (Version None)
Quarter: 2007Q1

REPORT INFORMATION
  Report Type: 
  Country: None (occurrence: None)
  Receive Date: 20070124
  Receipt Date: 20070118
  Transmission Date: 20070707
  Serious: Yes (Disabling)
  Sender: FDA-Public Use
  Company Number: DK-BOEHRINGER INGELHEIM PHARMACEUTICALS, INC.-2007-SW-00027DB

PATIENT
  Sex: Female

DRUGS (4)
  1. MICARDIS PLUS TAB 80 MG + 25 MG [Suspect]
     Indication: HYPERTENSION
     Dosage: STRENGHT AND DAILY DOSE: 80 MG TELMISARTAN + 12.5 MG HCT
     Dates: start: 20051216
  2. AMLODIPINE [Concomitant]
     Indication: HYPERTENSION
  3. PROPRANOLOL [Concomitant]
     Indication: HYPERTENSION
  4. PROPRANOLOL [Concomitant]
     Indication: TACHYCARDIA

REACTIONS (1)
  - BREAST CANCER FEMALE [None]
